FAERS Safety Report 7868117-7 (Version None)
Quarter: 2011Q4

REPORT INFORMATION
  Report Type: 
  Country: None (occurrence: None)
  Receive Date: 20111028
  Receipt Date: 20111027
  Transmission Date: 20120403
  Serious: Yes (Death, Other)
  Sender: FDA-Public Use
  Company Number: PHEH2009US01467

PATIENT
  Sex: Female
  Weight: 54.875 kg

DRUGS (11)
  1. ZOMETA [Suspect]
     Indication: NEOPLASM MALIGNANT
     Dates: end: 20050301
  2. NORVASC [Concomitant]
  3. FASLODEX [Concomitant]
  4. SENNOSIDE [Concomitant]
  5. DILAUDID [Concomitant]
  6. THIAMINE HCL [Concomitant]
  7. INSULIN LISPRO [Concomitant]
  8. MOTRIN [Concomitant]
  9. DIAZEPAM [Concomitant]
  10. PREDNISONE [Concomitant]
  11. ASPIRIN [Concomitant]

REACTIONS (69)
  - PAIN IN JAW [None]
  - DENTAL CARIES [None]
  - PULMONARY VASCULAR DISORDER [None]
  - PATHOLOGICAL FRACTURE [None]
  - HAEMORRHAGIC ANAEMIA [None]
  - MYOCARDIAL INFARCTION [None]
  - CARDIOMEGALY [None]
  - ASPIRATION [None]
  - BONE DISORDER [None]
  - CHOLELITHIASIS [None]
  - AORTIC DISORDER [None]
  - MALNUTRITION [None]
  - DEMENTIA [None]
  - VENTRICULAR TACHYCARDIA [None]
  - HYPERGLYCAEMIA [None]
  - TOOTH ABSCESS [None]
  - MASTICATION DISORDER [None]
  - AORTIC ARTERIOSCLEROSIS [None]
  - METASTASES TO SPINE [None]
  - PULMONARY CONGESTION [None]
  - INTERVERTEBRAL DISC SPACE NARROWING [None]
  - ANXIETY [None]
  - HYPERCALCAEMIA OF MALIGNANCY [None]
  - PSORIASIS [None]
  - BONE LOSS [None]
  - CAROTID ARTERY STENOSIS [None]
  - OCCULT BLOOD [None]
  - OSTEONECROSIS OF JAW [None]
  - JAW DISORDER [None]
  - GINGIVAL BLEEDING [None]
  - FALL [None]
  - AGITATION [None]
  - UPPER LIMB FRACTURE [None]
  - NEOPLASM MALIGNANT [None]
  - CONFUSIONAL STATE [None]
  - ORAL INFECTION [None]
  - GENERAL PHYSICAL HEALTH DETERIORATION [None]
  - WEIGHT DECREASED [None]
  - SPINAL COLUMN STENOSIS [None]
  - NEOPLASM PROGRESSION [None]
  - METASTASES TO BONE [None]
  - PLEURAL FIBROSIS [None]
  - CARDIAC VALVE DISEASE [None]
  - ARRHYTHMIA [None]
  - LEFT ATRIAL DILATATION [None]
  - RENAL CYST [None]
  - TOOTH LOSS [None]
  - EATING DISORDER [None]
  - DYSARTHRIA [None]
  - NEURODEGENERATIVE DISORDER [None]
  - COMPRESSION FRACTURE [None]
  - HYPERTENSIVE HEART DISEASE [None]
  - HYPERTENSION [None]
  - CEREBROVASCULAR ACCIDENT [None]
  - VIITH NERVE PARALYSIS [None]
  - GASTROOESOPHAGEAL REFLUX DISEASE [None]
  - DYSPHAGIA [None]
  - OESOPHAGITIS [None]
  - DECREASED APPETITE [None]
  - NAUSEA [None]
  - ASTHENIA [None]
  - HALLUCINATION, VISUAL [None]
  - HYDRONEPHROSIS [None]
  - HEPATIC CIRRHOSIS [None]
  - DEPRESSION [None]
  - METASTASES TO PERITONEUM [None]
  - GASTRITIS EROSIVE [None]
  - HYPOKALAEMIA [None]
  - ASCITES [None]
